FAERS Safety Report 7280482-0 (Version None)
Quarter: 2011Q1

REPORT INFORMATION
  Report Type: 
  Country: None (occurrence: None)
  Receive Date: 20110208
  Receipt Date: 20110126
  Transmission Date: 20110831
  Serious: Yes (Other)
  Sender: FDA-Public Use
  Company Number: FR-SANOFI-AVENTIS-2011SA005863

PATIENT
  Age: 60 Year
  Sex: Female

DRUGS (4)
  1. SEROPLEX [Concomitant]
     Route: 065
  2. KETEK [Suspect]
     Dates: start: 20100101, end: 20100101
  3. CHONDROSULF [Concomitant]
     Route: 065
  4. CEPHALOSPORINS AND RELATED SUBSTANCES [Concomitant]
     Route: 065

REACTIONS (1)
  - LIVER INJURY [None]
